FAERS Safety Report 5197802-3 (Version None)
Quarter: 2006Q4

REPORT INFORMATION
  Report Type: 
  Country: None (occurrence: None)
  Receive Date: 20061228
  Receipt Date: 20061218
  Transmission Date: 20070319
  Serious: Yes (Other)
  Sender: FDA-Public Use
  Company Number: TPA2006A02264

PATIENT

DRUGS (1)
  1. ACTOS [Suspect]
     Dosage: UNKNOWN, PER ORAL
     Route: 048

REACTIONS (1)
  - HAEMORRHAGIC STROKE [None]
